FAERS Safety Report 15772121 (Version 1)
Quarter: 2018Q4

REPORT INFORMATION
  Report Type: Spontaneous
  Country: US (occurrence: US)
  Receive Date: 20181228
  Receipt Date: 20181228
  Transmission Date: 20190205
  Serious: Yes (Hospitalization)
  Sender: FDA-Public Use
  Company Number: US-MYLANLABS-2018M1096995

PATIENT
  Age: 58 Year
  Sex: Male

DRUGS (2)
  1. CISPLATIN. [Suspect]
     Active Substance: CISPLATIN
     Indication: GASTROINTESTINAL CARCINOMA
     Dosage: RECEIVED ONE CYCLE OF CHEMOTHERAPY
     Route: 065
  2. GEMCITABINE [Suspect]
     Active Substance: GEMCITABINE\GEMCITABINE HYDROCHLORIDE
     Indication: GASTROINTESTINAL CARCINOMA
     Dosage: RECEIVED ONE CYCLE OF CHEMOTHERAPY
     Route: 065

REACTIONS (3)
  - Decreased appetite [Unknown]
  - Asthenia [Unknown]
  - Lethargy [Unknown]
